FAERS Safety Report 4718799-3 (Version None)
Quarter: 2005Q3

REPORT INFORMATION
  Report Type: 
  Country: None (occurrence: None)
  Receive Date: 20050719
  Receipt Date: 20050705
  Transmission Date: 20060218
  Serious: Yes (Death)
  Sender: FDA-Public Use
  Company Number: 2001077800US

PATIENT
  Sex: Female

DRUGS (21)
  1. CELEBREX [Suspect]
     Indication: ILL-DEFINED DISORDER
     Dosage: 200 MG (200 MG, 1 IN 1 D) ORAL
     Route: 048
     Dates: start: 20000209
  2. LIPITOR [Concomitant]
  3. HYDROCODONE BITARTRATE [Concomitant]
  4. ALPRAZOLAM [Concomitant]
  5. BUSPAR [Concomitant]
  6. ACCOLATE [Concomitant]
  7. PANCOF-HO (CHLORPHENAMINE, HYDROCODONE BITARTRATE, PSEUDOEPHEDRINE) [Concomitant]
  8. AMARYL [Concomitant]
  9. PAXIL [Concomitant]
  10. PREMARIN [Concomitant]
  11. CARISOPRODOL [Concomitant]
  12. PERCOCET [Concomitant]
  13. HYDROCORTISONE/PRAMOZINE/ZINC SULFATE [Concomitant]
  14. PROMETHAZINE [Concomitant]
  15. CLARITIN (CLARITINE) [Concomitant]
  16. SEREVENT [Concomitant]
  17. ALBUTEROL [Concomitant]
  18. FLONASE [Concomitant]
  19. NOTUSS (CHLORPHENAMINE, HYDROCODONE, PSEUDOEPHEDRINE) [Concomitant]
  20. TEQUIN [Concomitant]
  21. METHYLPREDNISOLONE [Concomitant]

REACTIONS (14)
  - ACUTE MYOCARDIAL INFARCTION [None]
  - ARRHYTHMIA [None]
  - BLOOD PRESSURE INCREASED [None]
  - CARDIO-RESPIRATORY ARREST [None]
  - FALL [None]
  - GASTROINTESTINAL HAEMORRHAGE [None]
  - HAEMATOCRIT DECREASED [None]
  - HAEMOGLOBIN DECREASED [None]
  - INTERNATIONAL NORMALISED RATIO INCREASED [None]
  - LARGE INTESTINAL ULCER HAEMORRHAGE [None]
  - OEDEMA [None]
  - OESOPHAGEAL ULCER HAEMORRHAGE [None]
  - PROTHROMBIN TIME PROLONGED [None]
  - SUDDEN CARDIAC DEATH [None]
